FAERS Safety Report 4404691-0 (Version None)
Quarter: 2004Q3

REPORT INFORMATION
  Report Type: 
  Country: None (occurrence: None)
  Receive Date: 20040720
  Receipt Date: 20040209
  Transmission Date: 20050211
  Serious: No
  Sender: FDA-Public Use
  Company Number: LUP-0004 (0) 2004-00535

PATIENT
  Age: 59 Year
  Sex: Female
  Weight: 68.0396 kg

DRUGS (5)
  1. CEFUROXIME AXETIL (CEFUROXIME AXETIL) (250 MILLIGRAM, PILL) [Suspect]
     Indication: SINUSITIS
     Dosage: 500 MG (250 MG, 2 IN 1 D), ORAL
     Route: 048
     Dates: start: 20040207
  2. ESTRADIOL [Concomitant]
  3. LIPITOR [Concomitant]
  4. ZYRTEC (CEFUROXIME AXETIL) [Concomitant]
  5. ESTRADIOL [Concomitant]

REACTIONS (2)
  - ERUCTATION [None]
  - PHARMACEUTICAL PRODUCT COMPLAINT [None]
